FAERS Safety Report 8771821 (Version 1)
Quarter: 2012Q4

REPORT INFORMATION
  Report Type: 
  Country: US (occurrence: US)
  Receive Date: 20120905
  Receipt Date: 20120905
  Transmission Date: 20130627
  Serious: No
  Sender: FDA-Public Use
  Company Number: US-ASTRAZENECA-2012SE60422

PATIENT
  Age: 50 Year
  Sex: Female
  Weight: 52.2 kg

DRUGS (3)
  1. SEROQUEL XR [Suspect]
     Indication: BIPOLAR DISORDER
     Route: 048
     Dates: start: 201111, end: 20120815
  2. SEROQUEL XR [Suspect]
     Indication: BIPOLAR DISORDER
     Route: 048
     Dates: start: 20120816
  3. LAMICTAL [Concomitant]
     Indication: BIPOLAR DISORDER
     Dates: start: 201110

REACTIONS (10)
  - Feeling hot [Unknown]
  - Feeling cold [Unknown]
  - Chills [Unknown]
  - Disturbance in attention [Unknown]
  - Sleep disorder [Unknown]
  - Lacrimation increased [Unknown]
  - Affect lability [Unknown]
  - Vomiting [Unknown]
  - Intentional drug misuse [Unknown]
  - Drug dose omission [Unknown]
